FAERS Safety Report 5892316-7 (Version None)
Quarter: 2008Q3

REPORT INFORMATION
  Report Type: 
  Country: None (occurrence: None)
  Receive Date: 20080922
  Receipt Date: 20080916
  Transmission Date: 20090109
  Serious: Yes (Other)
  Sender: FDA-Public Use
  Company Number: US-JNJCH-2008023968

PATIENT
  Age: 41 Year
  Sex: Female
  Weight: 49 kg

DRUGS (4)
  1. BENADRYL [Suspect]
     Indication: NASOPHARYNGITIS
     Dosage: TEXT:2 CAPSULES POSSIBLY EVERY HOUR OR SO
     Route: 048
     Dates: start: 20080915, end: 20080915
  2. BENADRYL [Suspect]
     Dosage: TEXT:2 ULTRATABS POSSIBLY EVERY HOUR OR SO
     Route: 048
     Dates: start: 20080915, end: 20080915
  3. CODEINE SUL TAB [Concomitant]
     Indication: DRUG USE FOR UNKNOWN INDICATION
     Dosage: TEXT:UNKNOWN
     Route: 065
  4. TOPAMAX [Concomitant]
     Indication: CONVULSION
     Dosage: TEXT:UNKNOWN
     Route: 065

REACTIONS (5)
  - DYSSTASIA [None]
  - INCOHERENT [None]
  - MEDICATION ERROR [None]
  - NO REACTION ON PREVIOUS EXPOSURE TO DRUG [None]
  - PYREXIA [None]
